FAERS Safety Report 15987682 (Version 4)
Quarter: 2019Q3

REPORT INFORMATION
  Report Type: Spontaneous
  Country: US (occurrence: US)
  Receive Date: 20190220
  Receipt Date: 20190729
  Transmission Date: 20191004
  Serious: Yes (Other)
  Sender: FDA-Public Use
  Company Number: US-PFIZER INC-2019075583

PATIENT
  Age: 56 Year
  Sex: Female

DRUGS (25)
  1. AMLODIPINE BESYLATE. [Concomitant]
     Active Substance: AMLODIPINE BESYLATE
     Indication: HYPERTENSION
     Dosage: UNK
     Dates: start: 2010, end: 2012
  2. PLAVIX [Concomitant]
     Active Substance: CLOPIDOGREL BISULFATE
     Indication: CORONARY ARTERY DISEASE
     Dosage: UNK
     Dates: start: 2010, end: 2012
  3. CHLORZOXAZONE. [Concomitant]
     Active Substance: CHLORZOXAZONE
     Dosage: UNK
     Dates: start: 2012
  4. ESOMEPRAZOLE. [Suspect]
     Active Substance: ESOMEPRAZOLE MAGNESIUM
     Dosage: UNK
  5. OMEPRAZOLE. [Suspect]
     Active Substance: OMEPRAZOLE
     Indication: GASTROOESOPHAGEAL REFLUX DISEASE
     Dosage: UNK
     Dates: start: 20090626, end: 20090820
  6. FLUOXETINE [Concomitant]
     Active Substance: FLUOXETINE HYDROCHLORIDE
     Dosage: UNK
     Dates: start: 2010, end: 2011
  7. PANTOPRAZOLE [Suspect]
     Active Substance: PANTOPRAZOLE
     Indication: GASTROOESOPHAGEAL REFLUX DISEASE
     Dosage: 40 MG, UNK
     Dates: start: 20090417, end: 20091106
  8. PANTOPRAZOLE [Suspect]
     Active Substance: PANTOPRAZOLE
     Dosage: 40 MG, UNK
     Dates: start: 20121002
  9. PROTONIX [Suspect]
     Active Substance: PANTOPRAZOLE SODIUM
     Indication: GASTROOESOPHAGEAL REFLUX DISEASE
     Dosage: 40 MG, UNK
     Dates: start: 20100106, end: 20101231
  10. OMEPRAZOLE. [Suspect]
     Active Substance: OMEPRAZOLE
     Dosage: UNK
     Dates: start: 20110217
  11. EFFEXOR XR [Concomitant]
     Active Substance: VENLAFAXINE HYDROCHLORIDE
     Dosage: UNK
     Dates: start: 2010
  12. NEXIUM [Suspect]
     Active Substance: ESOMEPRAZOLE MAGNESIUM
     Dosage: 40 MG, DAILY
  13. PREVACID [Suspect]
     Active Substance: LANSOPRAZOLE
     Indication: GASTROOESOPHAGEAL REFLUX DISEASE
     Dosage: 40 MG, DAILY
     Dates: start: 20080626, end: 2016
  14. OMEPRAZOLE. [Suspect]
     Active Substance: OMEPRAZOLE
     Dosage: UNK
     Dates: start: 20170226
  15. ZANTAC [Concomitant]
     Active Substance: RANITIDINE HYDROCHLORIDE
     Dosage: 150 MG, UNK
     Dates: start: 2012
  16. GLIPIZIDE. [Concomitant]
     Active Substance: GLIPIZIDE
     Indication: DIABETES MELLITUS
     Dosage: UNK
     Dates: start: 2010, end: 2012
  17. VENLAFAXINE XR [Concomitant]
     Active Substance: VENLAFAXINE HYDROCHLORIDE
     Dosage: UNK
     Dates: start: 2010, end: 2012
  18. SIMVASTATIN. [Concomitant]
     Active Substance: SIMVASTATIN
     Indication: HYPERLIPIDAEMIA
     Dosage: UNK
     Dates: start: 2011
  19. NEXIUM 24HR [Suspect]
     Active Substance: ESOMEPRAZOLE MAGNESIUM
     Dosage: 20 MG, DAILY
  20. LANSOPRAZOLE. [Suspect]
     Active Substance: LANSOPRAZOLE
     Dosage: UNK
  21. PREVACID 24 HR [Suspect]
     Active Substance: LANSOPRAZOLE
     Dosage: 15 MG, DAILY
  22. PRILOSEC OTC [Suspect]
     Active Substance: OMEPRAZOLE MAGNESIUM
     Dosage: 20 MG, DAILY
  23. METFORMIN [Concomitant]
     Active Substance: METFORMIN HYDROCHLORIDE
     Indication: DIABETES MELLITUS
     Dosage: UNK
     Dates: start: 2010, end: 2012
  24. BUMETANIDE. [Concomitant]
     Active Substance: BUMETANIDE
     Dosage: UNK
     Dates: start: 2010, end: 2012
  25. PRILOSEC [Suspect]
     Active Substance: OMEPRAZOLE MAGNESIUM
     Indication: GASTROOESOPHAGEAL REFLUX DISEASE
     Dosage: 40 MG, DAILY
     Dates: start: 20090803

REACTIONS (2)
  - Chronic kidney disease [Unknown]
  - Acute kidney injury [Unknown]

NARRATIVE: CASE EVENT DATE: 20120806
